FAERS Safety Report 9369531 (Version 4)
Quarter: 2016Q3

REPORT INFORMATION
  Report Type: Report from Study
  Country: BR (occurrence: BR)
  Receive Date: 20130626
  Receipt Date: 20160909
  Transmission Date: 20161109
  Serious: Yes (Hospitalization, Other)
  Sender: FDA-Public Use
  Company Number: BR-ROCHE-1239895

PATIENT
  Age: 48 Year
  Sex: Female
  Weight: 54 kg

DRUGS (25)
  1. BAMIFIX [Concomitant]
     Active Substance: BAMIFYLLINE HYDROCHLORIDE
     Indication: PRODUCT USED FOR UNKNOWN INDICATION
     Dosage: 300 MG, 12 TO 12 HOURS
     Route: 065
     Dates: start: 2006
  2. PREDNISONE. [Concomitant]
     Active Substance: PREDNISONE
     Indication: BRONCHIAL DISORDER
     Dosage: UNK UNK, QD
     Route: 065
     Dates: start: 2006
  3. APRESOLINE HYDROCHLORIDE [Concomitant]
     Active Substance: HYDRALAZINE HYDROCHLORIDE
     Indication: PRODUCT USED FOR UNKNOWN INDICATION
     Dosage: UNK
     Route: 065
     Dates: start: 2011
  4. INSULIN REGULAR [Concomitant]
     Active Substance: INSULIN NOS
     Route: 065
     Dates: start: 2012
  5. RANITIDINE. [Concomitant]
     Active Substance: RANITIDINE
     Indication: PRODUCT USED FOR UNKNOWN INDICATION
     Dosage: 1 DF, (BEFORE SLEEP 1 TABLET)
     Route: 065
     Dates: start: 2012
  6. LASIX [Concomitant]
     Active Substance: FUROSEMIDE
     Indication: PRODUCT USED FOR UNKNOWN INDICATION
     Dosage: 40 OT, UNK
     Route: 065
     Dates: start: 2007
  7. GLIBENCLAMIDE [Concomitant]
     Active Substance: GLYBURIDE
     Indication: PRODUCT USED FOR UNKNOWN INDICATION
     Dosage: UNK
     Route: 065
     Dates: start: 2011
  8. ALENIA (BRAZIL) [Concomitant]
     Active Substance: BUDESONIDE\FORMOTEROL FUMARATE
     Indication: ASTHMA
     Dosage: UNK, 8 TO 8 HOURS
     Route: 065
     Dates: start: 2007
  9. RIVOTRIL [Concomitant]
     Active Substance: CLONAZEPAM
     Route: 065
     Dates: start: 2007
  10. XOLAIR [Suspect]
     Active Substance: OMALIZUMAB
     Dosage: 300 MG, QMO
     Route: 058
     Dates: start: 20130618
  11. ALENIA (BRAZIL) [Concomitant]
     Active Substance: BUDESONIDE\FORMOTEROL FUMARATE
     Dosage: 1 DF, JET (12/12 HRS)
     Route: 065
     Dates: start: 2008
  12. PREDNISONE. [Concomitant]
     Active Substance: PREDNISONE
     Indication: ASTHMA
     Dosage: 50 MG, EVERY MORNING
     Route: 048
     Dates: start: 20060601
  13. NORVASC [Concomitant]
     Active Substance: AMLODIPINE BESYLATE
     Indication: PRODUCT USED FOR UNKNOWN INDICATION
     Dosage: 2 DF, (2 TABLETS)
     Route: 065
     Dates: start: 2006
  14. ENALAPRIL [Concomitant]
     Active Substance: ENALAPRIL
     Indication: PRODUCT USED FOR UNKNOWN INDICATION
     Dosage: 10 OT, UNK
     Route: 065
     Dates: start: 2007
  15. LUMIGAN [Concomitant]
     Active Substance: BIMATOPROST
     Indication: GLAUCOMA
     Dosage: UNK
     Route: 065
     Dates: start: 2007
  16. XOLAIR [Suspect]
     Active Substance: OMALIZUMAB
     Indication: ASTHMA
     Dosage: 28 TO 28 DAYS
     Route: 058
     Dates: start: 20110613
  17. AEROLIN [Concomitant]
     Active Substance: ALBUTEROL
     Indication: PRODUCT USED FOR UNKNOWN INDICATION
     Dosage: 2 DF, 2 JETS (4 TO 4 HOURS)
     Route: 065
  18. BUDESONIDE. [Concomitant]
     Active Substance: BUDESONIDE
     Indication: ASTHMA
     Dosage: 1 DF,12 TO 12 HOURS
     Route: 065
     Dates: start: 2007
  19. BUDESONIDE. [Concomitant]
     Active Substance: BUDESONIDE
     Dosage: 1 DF, JET 12 TO 12 HOURS
     Route: 065
     Dates: start: 2008
  20. SALBUTAMOL [Concomitant]
     Active Substance: ALBUTEROL
     Indication: ASTHMA
     Dosage: SPORADIC
     Route: 065
     Dates: start: 2007
  21. METFORMIN [Concomitant]
     Active Substance: METFORMIN HYDROCHLORIDE
     Indication: DIABETES MELLITUS
     Dosage: 850 OT, UNK
     Route: 065
     Dates: start: 2007
  22. OMEPRAZOLE. [Concomitant]
     Active Substance: OMEPRAZOLE
     Route: 065
     Dates: start: 2007
  23. DIGESAN [Concomitant]
     Active Substance: BROMOPRIDE
     Route: 065
     Dates: start: 2007
  24. XOLAIR [Suspect]
     Active Substance: OMALIZUMAB
     Dosage: UNK
     Route: 058
     Dates: start: 20130618
  25. FLUOXETINE [Concomitant]
     Active Substance: FLUOXETINE HYDROCHLORIDE
     Indication: DEPRESSION
     Dosage: 2 DF, UNK
     Route: 065
     Dates: start: 2006

REACTIONS (24)
  - Erysipelas [Unknown]
  - Insomnia [Unknown]
  - Oesophagitis [Unknown]
  - Gait disturbance [Recovering/Resolving]
  - Fluid retention [Unknown]
  - Malaise [Unknown]
  - Pneumonia bacterial [Recovered/Resolved]
  - Dyspnoea [Unknown]
  - Pneumonia [Recovering/Resolving]
  - Fatigue [Recovering/Resolving]
  - Weight increased [Recovered/Resolved]
  - Hypertension [Recovering/Resolving]
  - Diabetic foot [Unknown]
  - Cataract [Recovering/Resolving]
  - Osteoarthritis [Unknown]
  - Pulmonary oedema [Recovering/Resolving]
  - Back disorder [Recovering/Resolving]
  - Limb injury [Recovering/Resolving]
  - Apnoea [Unknown]
  - Diabetes mellitus [Recovering/Resolving]
  - Asthma [Recovering/Resolving]
  - Abdominal pain upper [Unknown]
  - Dyskinesia oesophageal [Unknown]
  - Gastrooesophageal reflux disease [Unknown]

NARRATIVE: CASE EVENT DATE: 2013
